FAERS Safety Report 8032781-2 (Version None)
Quarter: 2012Q1

REPORT INFORMATION
  Report Type: 
  Country: None (occurrence: None)
  Receive Date: 20120110
  Receipt Date: 20111230
  Transmission Date: 20120608
  Serious: Yes (Hospitalization)
  Sender: FDA-Public Use
  Company Number: FR-BAXTER-2012BH000432

PATIENT
  Age: 2 Year
  Sex: Male
  Weight: 10 kg

DRUGS (7)
  1. VOGALENE [Concomitant]
     Indication: PRODUCT USED FOR UNKNOWN INDICATION
     Route: 042
  2. ACETAMINOPHEN [Concomitant]
     Indication: PAIN
     Route: 042
  3. ETOPOSIDE [Suspect]
     Indication: NEPHROBLASTOMA
     Route: 042
     Dates: start: 20111107, end: 20111108
  4. ACEBUTOLOL [Concomitant]
     Indication: HYPERTENSION
     Route: 048
     Dates: start: 20100101
  5. IFOSFAMIDE [Suspect]
     Indication: NEPHROBLASTOMA
     Route: 042
     Dates: start: 20111107, end: 20111108
  6. NALBUPHINE [Concomitant]
     Indication: PAIN
     Route: 042
  7. CARBOPLATIN [Suspect]
     Indication: NEPHROBLASTOMA
     Route: 042
     Dates: start: 20111107, end: 20111108

REACTIONS (2)
  - RENAL TUBULAR DISORDER [None]
  - HYPONATRAEMIA [None]
